FAERS Safety Report 7619407-4 (Version None)
Quarter: 2011Q3

REPORT INFORMATION
  Report Type: 
  Country: None (occurrence: None)
  Receive Date: 20110719
  Receipt Date: 20110711
  Transmission Date: 20111222
  Serious: No
  Sender: FDA-Public Use
  Company Number: US-BIOGENIDEC-2010BI012624

PATIENT
  Sex: Female

DRUGS (1)
  1. TYSABRI [Suspect]
     Indication: MULTIPLE SCLEROSIS
     Route: 042
     Dates: start: 20080618

REACTIONS (13)
  - PAIN [None]
  - GENERAL SYMPTOM [None]
  - GAIT DISTURBANCE [None]
  - HYPOAESTHESIA [None]
  - STRESS [None]
  - PARAESTHESIA [None]
  - MULTIPLE SCLEROSIS [None]
  - ANXIETY [None]
  - DRUG INEFFECTIVE [None]
  - FATIGUE [None]
  - NARCOLEPSY [None]
  - NEURALGIA [None]
  - DEPRESSION [None]
